FAERS Safety Report 9829708 (Version 2)
Quarter: 2014Q1

REPORT INFORMATION
  Report Type: Spontaneous
  Country: US (occurrence: US)
  Receive Date: 20140114
  Receipt Date: 20140203
  Transmission Date: 20141002
  Serious: No
  Sender: FDA-Public Use
  Company Number: US-009507513-1401USA004778

PATIENT
  Sex: Male

DRUGS (1)
  1. PROVENTIL [Suspect]
     Indication: BRONCHITIS
     Dosage: 2 DF, TID
     Route: 055

REACTIONS (2)
  - Ear infection [Not Recovered/Not Resolved]
  - Drug dose omission [Unknown]
